FAERS Safety Report 5198086-2 (Version None)
Quarter: 2006Q4

REPORT INFORMATION
  Report Type: 
  Country: None (occurrence: None)
  Receive Date: 20061228
  Receipt Date: 20061213
  Transmission Date: 20070319
  Serious: Yes (Other)
  Sender: FDA-Public Use
  Company Number: 2006RR-04911

PATIENT
  Age: 48 Year
  Sex: Female

DRUGS (1)
  1. LISINOPRIL [Suspect]
     Indication: PROTEINURIA
     Dosage: 5 MG, QD

REACTIONS (5)
  - ASCITES [None]
  - DRUG TOLERANCE DECREASED [None]
  - GASTROINTESTINAL OEDEMA [None]
  - OBSTRUCTION GASTRIC [None]
  - SMALL BOWEL ANGIOEDEMA [None]
